FAERS Safety Report 20884089 (Version 1)
Quarter: 2022Q2

REPORT INFORMATION
  Report Type: Report from Study
  Country: US (occurrence: US)
  Receive Date: 20220527
  Receipt Date: 20220527
  Transmission Date: 20220720
  Serious: Yes (Disabling, Other)
  Sender: FDA-Public Use
  Company Number: US-PFIZER INC-202200751979

PATIENT
  Age: 91 Year
  Sex: Female

DRUGS (1)
  1. LYRICA [Suspect]
     Active Substance: PREGABALIN
     Dosage: UNK

REACTIONS (9)
  - Blindness [Unknown]
  - Asthenia [Unknown]
  - Concussion [Unknown]
  - Fall [Unknown]
  - Tremor [Unknown]
  - Confusional state [Unknown]
  - Contusion [Unknown]
  - Illness [Unknown]
  - General physical health deterioration [Unknown]
